FAERS Safety Report 5307534-6 (Version None)
Quarter: 2007Q2

REPORT INFORMATION
  Report Type: 
  Country: None (occurrence: None)
  Receive Date: 20070425
  Receipt Date: 20070413
  Transmission Date: 20071010
  Serious: Yes (Other)
  Sender: FDA-Public Use
  Company Number: GB-PFIZER INC-2007032569

PATIENT
  Sex: Female

DRUGS (2)
  1. FRAGMIN [Suspect]
     Route: 058
  2. FRAGMIN [Suspect]
     Route: 058

REACTIONS (1)
  - RASH [None]
